FAERS Safety Report 8308259-5 (Version None)
Quarter: 2012Q2

REPORT INFORMATION
  Report Type: 
  Country: None (occurrence: None)
  Receive Date: 20120424
  Receipt Date: 20120320
  Transmission Date: 20120825
  Serious: Yes (Other)
  Sender: FDA-Public Use
  Company Number: DE-ROCHE-1053132

PATIENT
  Sex: Male

DRUGS (1)
  1. ACTEMRA [Suspect]
     Indication: RHEUMATOID ARTHRITIS
     Route: 042

REACTIONS (2)
  - VASCULITIS [None]
  - UVEITIS [None]
